FAERS Safety Report 21144677 (Version 1)
Quarter: 2022Q3

REPORT INFORMATION
  Report Type: Spontaneous
  Country: US (occurrence: US)
  Receive Date: 20220728
  Receipt Date: 20220728
  Transmission Date: 20221026
  Serious: No
  Sender: FDA-Public Use
  Company Number: US-ELI_LILLY_AND_COMPANY-US202207013064

PATIENT
  Sex: Female

DRUGS (1)
  1. FORTEO [Suspect]
     Active Substance: TERIPARATIDE
     Indication: Osteoporosis
     Dosage: UNK, UNKNOWN
     Route: 065
     Dates: start: 202201

REACTIONS (4)
  - Oral mucosal blistering [Unknown]
  - Tongue blistering [Unknown]
  - Candida infection [Unknown]
  - Product storage error [Unknown]

NARRATIVE: CASE EVENT DATE: 20220601
